FAERS Safety Report 24971022 (Version 2)
Quarter: 2025Q1

REPORT INFORMATION
  Report Type: Spontaneous
  Country: US (occurrence: US)
  Receive Date: 20250214
  Receipt Date: 20250221
  Transmission Date: 20250408
  Serious: Yes (Hospitalization, Other)
  Sender: UCB
  Company Number: US-UCBSA-2025005333

PATIENT
  Sex: Male

DRUGS (2)
  1. CIMZIA [Suspect]
     Active Substance: CERTOLIZUMAB PEGOL
     Indication: Ankylosing spondylitis
     Dosage: 200 MILLIGRAM, EV 2 WEEKS(QOW)
     Route: 058
     Dates: start: 2023, end: 20250114
  2. KEPPRA [Suspect]
     Active Substance: LEVETIRACETAM
     Indication: Generalised tonic-clonic seizure
     Dosage: 500 MILLIGRAM, 2X/DAY (BID)
     Route: 048
     Dates: start: 20250118

REACTIONS (5)
  - Seizure [Recovered/Resolved]
  - Rash [Recovering/Resolving]
  - Pituitary tumour [Recovered/Resolved]
  - Generalised tonic-clonic seizure [Recovered/Resolved]
  - Pituitary tumour removal [Recovered/Resolved]

NARRATIVE: CASE EVENT DATE: 20250118
